FAERS Safety Report 7193632-1 (Version None)
Quarter: 2010Q4

REPORT INFORMATION
  Report Type: 
  Country: None (occurrence: None)
  Receive Date: 20101124
  Receipt Date: 20101005
  Transmission Date: 20110411
  Serious: No
  Sender: FDA-Public Use
  Company Number: 018542

PATIENT
  Sex: Female

DRUGS (7)
  1. LACOSAMIDE [Suspect]
     Indication: EPILEPSY
     Dosage: SEE IMAGE
  2. LAMOTRIGINE [Concomitant]
  3. PRENATAL VITAMINS /01549301/ [Concomitant]
  4. FOLIC ACID [Concomitant]
  5. ACETAMINOPHEN [Concomitant]
  6. MULTI-VITAMINS [Concomitant]
  7. DIAZEPAM [Concomitant]

REACTIONS (4)
  - BLOOD GLUCOSE DECREASED [None]
  - CONVULSION [None]
  - PAIN [None]
  - PREGNANCY [None]
